FAERS Safety Report 8614953-9 (Version None)
Quarter: 2012Q3

REPORT INFORMATION
  Report Type: 
  Country: None (occurrence: None)
  Receive Date: 20120823
  Receipt Date: 20120814
  Transmission Date: 20120928
  Serious: Yes (Life-Threatening, Other)
  Sender: FDA-Public Use
  Company Number: US-NAPPMUNDI-USA-2012-0091566

PATIENT
  Age: 20 Year
  Sex: Male

DRUGS (1)
  1. OXYCODONE HCL [Suspect]
     Indication: DRUG ABUSE

REACTIONS (4)
  - UNRESPONSIVE TO STIMULI [None]
  - RESPIRATORY ARREST [None]
  - DRUG ABUSE [None]
  - IMPAIRED DRIVING ABILITY [None]
